FAERS Safety Report 15574027 (Version 1)
Quarter: 2018Q4

REPORT INFORMATION
  Report Type: Spontaneous
  Country: US (occurrence: US)
  Receive Date: 20181101
  Receipt Date: 20181101
  Transmission Date: 20190205
  Serious: No
  Sender: FDA-Public Use
  Company Number: US-LUPIN PHARMACEUTICALS INC.-2018-00541

PATIENT
  Age: 44 Year
  Sex: Male
  Weight: 77.98 kg

DRUGS (2)
  1. LISINOPRIL TABLETS USP, 10MG [Suspect]
     Active Substance: LISINOPRIL
     Dosage: 10 MG, QD (SMALLER TABLETS)
     Route: 048
     Dates: start: 20171214, end: 20180109
  2. LISINOPRIL TABLETS USP, 10MG [Suspect]
     Active Substance: LISINOPRIL
     Indication: HYPERTENSION
     Dosage: 10 MG, QD
     Route: 048

REACTIONS (1)
  - Cough [Not Recovered/Not Resolved]

NARRATIVE: CASE EVENT DATE: 20171214
